FAERS Safety Report 15185476 (Version 3)
Quarter: 2022Q4

REPORT INFORMATION
  Report Type: Report from Study
  Country: US (occurrence: US)
  Receive Date: 20180723
  Receipt Date: 20221206
  Transmission Date: 20230112
  Serious: Yes (Hospitalization, Other)
  Sender: FDA-Public Use
  Company Number: US-SHIRE-US201827245

PATIENT
  Sex: Male

DRUGS (2)
  1. HUMAN IMMUNOGLOBULIN G [Suspect]
     Active Substance: HUMAN IMMUNOGLOBULIN G
     Indication: Immunodeficiency common variable
     Dosage: UNK
     Route: 065
     Dates: end: 201811
  2. HUMAN IMMUNOGLOBULIN G [Suspect]
     Active Substance: HUMAN IMMUNOGLOBULIN G
     Dosage: UNK
     Route: 065
     Dates: end: 2019

REACTIONS (8)
  - Pyrexia [Unknown]
  - Migraine [Unknown]
  - Streptococcal infection [Unknown]
  - Influenza [Unknown]
  - Infection [Unknown]
  - Immunoglobulins decreased [Unknown]
  - Infusion related reaction [Unknown]
  - Product administration interrupted [Unknown]
